FAERS Safety Report 4322150-0 (Version None)
Quarter: 2004Q1

REPORT INFORMATION
  Report Type: 
  Country: None (occurrence: None)
  Receive Date: 20040319
  Receipt Date: 20040126
  Transmission Date: 20041129
  Serious: Yes (Hospitalization)
  Sender: FDA-Public Use
  Company Number: RB-439-2004

PATIENT
  Age: 27 Year
  Sex: Female

DRUGS (1)
  1. BUPRENORPHINE HYDROCHLORIDE [Suspect]
     Indication: DETOXIFICATION
     Dosage: 12 MG
     Route: 058
     Dates: start: 20030908, end: 20031124

REACTIONS (4)
  - CONVULSION [None]
  - DRUG SCREEN NEGATIVE [None]
  - HEAD INJURY [None]
  - INTENTIONAL MISUSE [None]
